FAERS Safety Report 7050643-4 (Version None)
Quarter: 2010Q4

REPORT INFORMATION
  Report Type: 
  Country: None (occurrence: None)
  Receive Date: 20101018
  Receipt Date: 20101013
  Transmission Date: 20110411
  Serious: Yes (Hospitalization)
  Sender: FDA-Public Use
  Company Number: FR-MERCK-1010FRA00046

PATIENT
  Age: 68 Year
  Sex: Male

DRUGS (11)
  1. EMEND [Suspect]
     Indication: PROPHYLAXIS OF NAUSEA AND VOMITING
     Route: 048
     Dates: start: 20100803, end: 20100804
  2. DOCETAXEL [Suspect]
     Indication: PROSTATE CANCER RECURRENT
     Route: 042
     Dates: start: 20100803, end: 20100803
  3. METHYLPREDNISOLONE SODIUM SUCCINATE [Suspect]
     Indication: PROSTATE CANCER RECURRENT
     Route: 042
     Dates: start: 20100803, end: 20100804
  4. ONDANSETRON HYDROCHLORIDE [Suspect]
     Indication: PROPHYLAXIS OF NAUSEA AND VOMITING
     Route: 065
     Dates: start: 20100803, end: 20100804
  5. PREDNISOLONE SODIUM METAZOATE [Suspect]
     Indication: PROSTATE CANCER RECURRENT
     Route: 048
     Dates: start: 20100804, end: 20100818
  6. PREDNISOLONE SODIUM METAZOATE [Suspect]
     Route: 048
     Dates: start: 20100819
  7. METOCLOPRAMIDE HYDROCHLORIDE [Suspect]
     Indication: PROPHYLAXIS OF NAUSEA AND VOMITING
     Route: 048
     Dates: start: 20100804, end: 20100818
  8. METOCLOPRAMIDE HYDROCHLORIDE [Suspect]
     Route: 048
     Dates: start: 20100819
  9. DOMPERIDONE [Suspect]
     Indication: PROPHYLAXIS OF NAUSEA AND VOMITING
     Route: 048
     Dates: start: 20100804, end: 20100818
  10. DOMPERIDONE [Suspect]
     Route: 048
     Dates: start: 20100819
  11. PEGFILGRASTIM [Suspect]
     Indication: PROPHYLAXIS
     Route: 042
     Dates: start: 20100805, end: 20100805

REACTIONS (2)
  - COLD TYPE HAEMOLYTIC ANAEMIA [None]
  - COOMBS POSITIVE HAEMOLYTIC ANAEMIA [None]
